FAERS Safety Report 4578539-8 (Version None)
Quarter: 2005Q1

REPORT INFORMATION
  Report Type: 
  Country: None (occurrence: None)
  Receive Date: 20050207
  Receipt Date: 20050207
  Transmission Date: 20050727
  Serious: Yes (Other)
  Sender: FDA-Public Use
  Company Number: None

PATIENT
  Sex: Female

DRUGS (2)
  1. BUSPAR [Suspect]
     Indication: ANXIETY
     Dosage: 5 MG TID
     Dates: start: 20021105, end: 20021214
  2. CELEXA [Concomitant]

REACTIONS (3)
  - GASTROOESOPHAGEAL REFLUX DISEASE [None]
  - PALPITATIONS [None]
  - REFUSAL OF TREATMENT BY PATIENT [None]
